FAERS Safety Report 8431808-3 (Version None)
Quarter: 2012Q2

REPORT INFORMATION
  Report Type: 
  Country: None (occurrence: None)
  Receive Date: 20120607
  Receipt Date: 20120607
  Transmission Date: 20120825
  Serious: Yes (Hospitalization)
  Sender: FDA-Public Use
  Company Number: None

PATIENT
  Sex: Female
  Weight: 14.4 kg

DRUGS (3)
  1. ETOPOSIDE [Suspect]
     Dosage: 440 MG
  2. CARBOPLATIN [Suspect]
     Dosage: 496 MG
  3. MELPHALAN HYDROCHLORIDE [Suspect]
     Dosage: 99 MG

REACTIONS (6)
  - FUNGAL INFECTION [None]
  - TACHYPNOEA [None]
  - OXYGEN SATURATION DECREASED [None]
  - ADENOVIRUS INFECTION [None]
  - RESPIRATORY DISTRESS [None]
  - OBLITERATIVE BRONCHIOLITIS [None]
